FAERS Safety Report 10162553 (Version 1)
Quarter: 2014Q2

REPORT INFORMATION
  Report Type: Spontaneous
  Country: AU (occurrence: AU)
  Receive Date: 20140509
  Receipt Date: 20140509
  Transmission Date: 20141212
  Serious: Yes (Hospitalization, Disabling, Other)
  Sender: FDA-Public Use
  Company Number: PHHY2014AU054546

PATIENT
  Age: 46 Year
  Sex: Female
  Weight: 81.5 kg

DRUGS (8)
  1. NILOTINIB [Suspect]
     Indication: CHRONIC MYELOID LEUKAEMIA
     Dosage: 600 MG, DAILY (400 MG MORNING AND 200 MG EVENING)
     Route: 048
     Dates: start: 20110907, end: 20140328
  2. ANTIHYPERTENSIVES [Concomitant]
     Indication: HYPERTENSION
  3. ROSUVASTATIN [Concomitant]
     Indication: HYPERCHOLESTEROLAEMIA
     Dosage: 10 MG, DAILY
     Route: 048
  4. COVERSYL PLUS                      /01421201/ [Concomitant]
     Indication: HYPERTENSION
     Dosage: 1 DF, DAILY
     Route: 048
  5. METFORMIN [Concomitant]
     Indication: DIABETES MELLITUS
     Dosage: 1000 MG, DAILY
     Route: 048
  6. REBOXETINE [Concomitant]
     Indication: DEPRESSION
     Dosage: 6 MG, DAILY (2 MG MORNING, 4 MG NIGHT)
     Route: 048
  7. PANTOPRAZOLE [Concomitant]
     Indication: GASTROOESOPHAGEAL REFLUX DISEASE
     Dosage: 40 MG, QD (AT MORNING)
     Route: 048
  8. LERCANIDIPINE [Concomitant]
     Indication: HYPERTENSION
     Dosage: 10 MG, DAILY
     Route: 048

REACTIONS (3)
  - Arterial thrombosis [Recovering/Resolving]
  - Pain in extremity [Unknown]
  - Pulse absent [Unknown]
